FAERS Safety Report 5123035-2 (Version None)
Quarter: 2006Q4

REPORT INFORMATION
  Report Type: 
  Country: None (occurrence: None)
  Receive Date: 20061005
  Receipt Date: 20060926
  Transmission Date: 20070319
  Serious: Yes (Hospitalization, Other)
  Sender: FDA-Public Use
  Company Number: 06-000782

PATIENT
  Age: 45 Year
  Sex: Female
  Weight: 77.1 kg

DRUGS (3)
  1. FEMHRT [Suspect]
     Indication: HOT FLUSH
     Dosage: 5/1000UG, QD, ORAL
     Route: 048
     Dates: start: 20020101, end: 20060101
  2. EFFEXOR [Suspect]
     Indication: DEPRESSION
     Dosage: UND, QD, ORAL
     Route: 048
     Dates: start: 20050601, end: 20060101
  3. PREDNISONE TAB [Concomitant]

REACTIONS (4)
  - CONDITION AGGRAVATED [None]
  - ECONOMIC PROBLEM [None]
  - GRAND MAL CONVULSION [None]
  - MULTIPLE SCLEROSIS [None]
